FAERS Safety Report 6401781-8 (Version None)
Quarter: 2009Q4

REPORT INFORMATION
  Report Type: 
  Country: None (occurrence: None)
  Receive Date: 20091013
  Receipt Date: 20091013
  Transmission Date: 20100525
  Serious: Yes (Hospitalization, Other)
  Sender: FDA-Public Use
  Company Number: None

PATIENT
  Age: 37 Year
  Sex: Male
  Weight: 80.7403 kg

DRUGS (2)
  1. CYMBALTA [Suspect]
     Indication: ANXIETY
     Dosage: 60MG ON TIME A DAY PO
     Route: 048
     Dates: start: 20090611, end: 20091011
  2. CYMBALTA [Suspect]
     Indication: DEPRESSION
     Dosage: 60MG ON TIME A DAY PO
     Route: 048
     Dates: start: 20090611, end: 20091011

REACTIONS (2)
  - ANURIA [None]
  - BLADDER DISORDER [None]
